FAERS Safety Report 17905683 (Version 1)
Quarter: 2020Q2

REPORT INFORMATION
  Report Type: Spontaneous
  Country: FR (occurrence: FR)
  Receive Date: 20200617
  Receipt Date: 20200617
  Transmission Date: 20200714
  Serious: Yes (Hospitalization)
  Sender: FDA-Public Use
  Company Number: FR-BRISTOL-MYERS SQUIBB COMPANY-BMS-2020-046154

PATIENT
  Age: 33 Year
  Sex: Male
  Weight: 75.5 kg

DRUGS (3)
  1. OPDIVO [Suspect]
     Active Substance: NIVOLUMAB
     Indication: METASTATIC MALIGNANT MELANOMA
     Dosage: 225 MILLIGRAM, 3 WEEK
     Route: 042
     Dates: start: 20191003
  2. YERVOY [Suspect]
     Active Substance: IPILIMUMAB
     Indication: METASTATIC MALIGNANT MELANOMA
     Dosage: 75 MILLIGRAM, 3 WEEK
     Route: 042
     Dates: start: 20191003
  3. PARACETAMOL [Concomitant]
     Active Substance: ACETAMINOPHEN
     Indication: PRODUCT USED FOR UNKNOWN INDICATION
     Dosage: UNK
     Route: 065

REACTIONS (4)
  - Normocytic anaemia [Not Recovered/Not Resolved]
  - Off label use [Unknown]
  - Secondary adrenocortical insufficiency [Not Recovered/Not Resolved]
  - Lymphocytic hypophysitis [Not Recovered/Not Resolved]

NARRATIVE: CASE EVENT DATE: 20200110
